FAERS Safety Report 7354008-7 (Version None)
Quarter: 2011Q1

REPORT INFORMATION
  Report Type: 
  Country: None (occurrence: None)
  Receive Date: 20110315
  Receipt Date: 20110308
  Transmission Date: 20110831
  Serious: Yes (Disabling)
  Sender: FDA-Public Use
  Company Number: PHHY2011AU14607

PATIENT
  Sex: Male

DRUGS (2)
  1. GALVUS [Suspect]
     Indication: DIABETES MELLITUS
     Dosage: ONCE A DAY
     Route: 048
     Dates: start: 20101001, end: 20110201
  2. EXFORGE [Suspect]
     Indication: HYPERTENSION
     Dosage: ONCE A DAY
     Route: 048
     Dates: start: 20101001, end: 20110201

REACTIONS (1)
  - FOREIGN BODY SENSATION IN EYES [None]
